FAERS Safety Report 8216725-6 (Version None)
Quarter: 2012Q1

REPORT INFORMATION
  Report Type: 
  Country: None (occurrence: None)
  Receive Date: 20120316
  Receipt Date: 20120316
  Transmission Date: 20120608
  Serious: Yes (Hospitalization)
  Sender: FDA-Public Use
  Company Number: IE-ABBOTT-11P-229-0844291-00

PATIENT
  Sex: Male

DRUGS (1)
  1. HUMIRA [Suspect]
     Indication: PSORIASIS

REACTIONS (5)
  - DEVICE MALFUNCTION [None]
  - INJECTION SITE PAIN [None]
  - DRUG DOSE OMISSION [None]
  - SKIN LESION [None]
  - INCORRECT DOSE ADMINISTERED [None]
